FAERS Safety Report 6387400-8 (Version None)
Quarter: 2009Q3

REPORT INFORMATION
  Report Type: 
  Country: None (occurrence: None)
  Receive Date: 20090930
  Receipt Date: 20090921
  Transmission Date: 20100115
  Serious: Yes (Other)
  Sender: FDA-Public Use
  Company Number: FABR-1000998

PATIENT
  Age: 47 Year
  Sex: Female
  Weight: 124.7 kg

DRUGS (1)
  1. FABRAZYME [Suspect]
     Indication: FABRY'S DISEASE
     Dosage: 100 MG, QOW, INTRAVENOUS
     Route: 042
     Dates: start: 20061101

REACTIONS (3)
  - HAEMODIALYSIS [None]
  - HERNIA [None]
  - RENAL IMPAIRMENT [None]
